FAERS Safety Report 13077125 (Version 1)
Quarter: 2016Q4

REPORT INFORMATION
  Report Type: Report from Study
  Country: CO (occurrence: CO)
  Receive Date: 20161230
  Receipt Date: 20161230
  Transmission Date: 20170207
  Serious: Yes (Death, Hospitalization, Other)
  Sender: FDA-Public Use
  Company Number: US-ASTRAZENECA-2016SF17540

PATIENT
  Age: 74 Day
  Sex: Male
  Weight: 2.2 kg

DRUGS (1)
  1. SYNAGIS [Suspect]
     Active Substance: PALIVIZUMAB
     Indication: PREMATURE BABY
     Route: 030
     Dates: start: 20161019, end: 20161019

REACTIONS (4)
  - Respiratory distress [Not Recovered/Not Resolved]
  - Nasal congestion [Not Recovered/Not Resolved]
  - Disease complication [Unknown]
  - Death [Fatal]

NARRATIVE: CASE EVENT DATE: 20161102
